FAERS Safety Report 5840322-0 (Version None)
Quarter: 2008Q3

REPORT INFORMATION
  Report Type: 
  Country: None (occurrence: None)
  Receive Date: 20080811
  Receipt Date: 20080801
  Transmission Date: 20090109
  Serious: Yes (Other)
  Sender: FDA-Public Use
  Company Number: US-ABBOTT-08P-163-0467636-00

PATIENT
  Sex: Male
  Weight: 103.51 kg

DRUGS (4)
  1. HUMIRA [Suspect]
     Indication: PSORIATIC ARTHROPATHY
     Route: 058
     Dates: start: 20050101
  2. HUMIRA [Suspect]
     Dates: start: 20080501
  3. TYLOX [Concomitant]
     Indication: PAIN
     Route: 048
  4. ZOLPIDEM TARTRATE [Concomitant]
     Indication: INSOMNIA
     Route: 048

REACTIONS (3)
  - MEDICAL DEVICE REMOVAL [None]
  - NAUSEA [None]
  - POSTOPERATIVE WOUND INFECTION [None]
